FAERS Safety Report 13387368 (Version 3)
Quarter: 2017Q2

REPORT INFORMATION
  Report Type: Spontaneous
  Country: HU (occurrence: HU)
  Receive Date: 20170330
  Receipt Date: 20170424
  Transmission Date: 20170830
  Serious: Yes (Hospitalization)
  Sender: FDA-Public Use
  Company Number: HU-PFIZER INC-2017133901

PATIENT
  Age: 74 Year
  Sex: Female

DRUGS (6)
  1. SUTENT [Suspect]
     Active Substance: SUNITINIB MALATE
     Dosage: 2ND CYCLE 50 MG, 1X/DAY CYCLIC, ACCORDING TO THE 2/1 SCHEMA
     Route: 048
     Dates: start: 20170109
  2. ADIMET [Concomitant]
     Dosage: 1X1
  3. BETALOC [Concomitant]
     Active Substance: METOPROLOL TARTRATE
     Dosage: 1X1/2
  4. SUTENT [Suspect]
     Active Substance: SUNITINIB MALATE
     Dosage: 3RD CYCLE, 37.5 MG, 1X/DAY CYCLIC,ACCORDING TO 2/1 SCHEMA
     Route: 048
     Dates: start: 20170220
  5. SUTENT [Suspect]
     Active Substance: SUNITINIB MALATE
     Indication: RENAL CANCER
     Dosage: 1ST CYCLE 50 MG, 1X/DAY, CYCLIC, ACCORDING TO THE 2/1 SCHEMA
     Route: 048
     Dates: start: 20161116
  6. ACCUZIDE [Concomitant]
     Active Substance: HYDROCHLOROTHIAZIDE\QUINAPRIL HYDROCHLORIDE
     Dosage: 1X1

REACTIONS (4)
  - Fall [Recovered/Resolved]
  - Concussion [Recovered/Resolved]
  - Dizziness [Recovered/Resolved]
  - Head injury [Recovered/Resolved]

NARRATIVE: CASE EVENT DATE: 20170321
